FAERS Safety Report 13558117 (Version 3)
Quarter: 2017Q3

REPORT INFORMATION
  Report Type: Spontaneous
  Country: CA (occurrence: CA)
  Receive Date: 20170518
  Receipt Date: 20170725
  Transmission Date: 20171127
  Serious: Yes (Other)
  Sender: FDA-Public Use
  Company Number: CA-GLAXOSMITHKLINE-CA2016GSK055775

PATIENT
  Age: 41 Year
  Sex: Female

DRUGS (5)
  1. BENLYSTA [Suspect]
     Active Substance: BELIMUMAB
     Indication: SYSTEMIC LUPUS ERYTHEMATOSUS
     Dosage: 677 MG, Z
     Dates: start: 20150729
  2. BENLYSTA [Suspect]
     Active Substance: BELIMUMAB
     Dosage: 660 MG EVERY 4 WEEKS
  3. BENLYSTA [Suspect]
     Active Substance: BELIMUMAB
     Dosage: 650 MG, UNK
  4. BENLYSTA [Suspect]
     Active Substance: BELIMUMAB
     Dosage: UNK
  5. BENLYSTA [Suspect]
     Active Substance: BELIMUMAB
     Dosage: UNK

REACTIONS (6)
  - Tooth infection [Unknown]
  - Arthralgia [Unknown]
  - Femur fracture [Unknown]
  - Adverse event [Unknown]
  - Pneumonia [Recovered/Resolved]
  - Pain in extremity [Unknown]

NARRATIVE: CASE EVENT DATE: 20161021
